FAERS Safety Report 4354445-9 (Version None)
Quarter: 2004Q2

REPORT INFORMATION
  Report Type: 
  Country: None (occurrence: None)
  Receive Date: 20040503
  Receipt Date: 20040420
  Transmission Date: 20050107
  Serious: Yes (Hospitalization)
  Sender: FDA-Public Use
  Company Number: 2004026693

PATIENT
  Age: 70 Year
  Sex: Male

DRUGS (5)
  1. ZOLOFT [Suspect]
     Indication: DEPRESSION
     Dosage: 50 MG (DAILY), ORAL
     Route: 048
     Dates: start: 20040310, end: 20040313
  2. IRBESARTAN (IRBESARTAN) [Suspect]
     Indication: HYPERTENSION
     Dosage: 300 MG (DAILY), ORAL
     Route: 048
     Dates: end: 20040317
  3. GINGKO BILOBA EXTRACT (GINKGO BILOBA EXTRACT) [Suspect]
     Indication: COGNITIVE DISORDER
     Dosage: 80 MG (BID), ORAL
     Route: 048
     Dates: start: 20040310, end: 20040313
  4. PHENYLBUTAZONE (PHENYLBUTAZONE) [Concomitant]
  5. METHOTREXATE [Concomitant]

REACTIONS (4)
  - ACUTE GENERALISED EXANTHEMATOUS PUSTULOSIS [None]
  - PRURIGO [None]
  - RASH ERYTHEMATOUS [None]
  - SKIN DESQUAMATION [None]
